FAERS Safety Report 17177051 (Version 1)
Quarter: 2019Q4

REPORT INFORMATION
  Report Type: Report from Study
  Country: JP (occurrence: JP)
  Receive Date: 20191219
  Receipt Date: 20191219
  Transmission Date: 20200122
  Serious: Yes (Hospitalization, Other)
  Sender: FDA-Public Use
  Company Number: JP-ALEXION PHARMACEUTICALS INC.-A201900419

PATIENT

DRUGS (16)
  1. ALFAROL [Suspect]
     Active Substance: ALFACALCIDOL
     Indication: HYPOPHOSPHATASIA
     Dosage: 2.5 ML, QD
     Route: 048
     Dates: end: 20190311
  2. PHENOBAL                           /00023201/ [Concomitant]
     Active Substance: PHENOBARBITAL
     Indication: HYPOPHOSPHATASIA
     Dosage: 0.3 G, BID
     Route: 048
  3. ADEROXAL [Concomitant]
     Active Substance: PYRIDOXAL PHOSPHATE
     Indication: HYPOPHOSPHATASIA
     Dosage: 0.854 G, TID
     Route: 048
     Dates: end: 20190129
  4. GLUCONSAN K [Concomitant]
     Active Substance: POTASSIUM GLUCONATE
     Indication: HYPOPHOSPHATASIA
     Dosage: 1.6 G, TID
     Route: 048
  5. THYRADIN S [Concomitant]
     Active Substance: LEVOTHYROXINE SODIUM
     Indication: HYPOPHOSPHATASIA
     Dosage: 0.3 G, QD
     Route: 048
  6. STRENSIQ [Suspect]
     Active Substance: ASFOTASE ALFA
     Indication: HYPOPHOSPHATASIA
     Dosage: 2 MG, TIW
     Route: 058
     Dates: start: 20150925
  7. JUZENTAIHOTO                       /07985601/ [Concomitant]
     Active Substance: HERBALS
     Indication: PROPHYLAXIS
     Dosage: 1.3 G, TID
     Route: 048
  8. HYALEIN [Concomitant]
     Active Substance: HYALURONATE SODIUM
     Indication: PROPHYLAXIS
     Dosage: APPROPRIATE AMOUNT, 2-4 TIMES A DAY
     Route: 047
  9. PYDOXAL [Concomitant]
     Active Substance: PYRIDOXAL
     Indication: HYPOPHOSPHATASIA
     Dosage: 66 MG, TID
     Route: 048
     Dates: start: 20190130
  10. ALLELOCK [Concomitant]
     Active Substance: OLOPATADINE HYDROCHLORIDE
     Indication: PROPHYLAXIS
     Dosage: 0.5 G, TIW
     Route: 048
     Dates: start: 20181212
  11. L CARTIN FF [Concomitant]
     Active Substance: LEVOCARNITINE
     Indication: HYPOPHOSPHATASIA
     Dosage: 1.5 ML, TID
     Route: 048
  12. BIOFERMIN                          /01617201/ [Concomitant]
     Active Substance: DIETARY SUPPLEMENT\PROBIOTICS
     Indication: HYPOPHOSPHATASIA
     Dosage: 0.3 G, TID
     Route: 048
  13. DANTRIUM [Concomitant]
     Active Substance: DANTROLENE SODIUM
     Indication: HYPOPHOSPHATASIA
     Dosage: 11.75 MG, TID
     Route: 048
  14. EMLA [Concomitant]
     Active Substance: LIDOCAINE\PRILOCAINE
     Indication: PROPHYLAXIS
     Dosage: 0.1 G, TIW
  15. BESOFTEN [Concomitant]
     Active Substance: PENTOSAN POLYSULFATE SODIUM
     Indication: PROPHYLAXIS
     Dosage: 1-2 G, QD
     Dates: start: 20190220
  16. HIRUDOID                           /00723701/ [Concomitant]
     Active Substance: PENTOSAN POLYSULFATE SODIUM
     Indication: PROPHYLAXIS
     Dosage: 1-2 G, BID

REACTIONS (9)
  - Talipes [Unknown]
  - Constipation [Not Recovered/Not Resolved]
  - Immediate post-injection reaction [Recovered/Resolved]
  - Acute kidney injury [Recovered/Resolved]
  - Dyspnoea [Recovered/Resolved]
  - Pneumonia [Recovered/Resolved]
  - Bone deformity [Unknown]
  - Heart rate decreased [Recovered/Resolved]
  - Erythema [Recovered/Resolved]

NARRATIVE: CASE EVENT DATE: 20180928
